FAERS Safety Report 14506070 (Version 1)
Quarter: 2018Q1

REPORT INFORMATION
  Report Type: Spontaneous
  Country: GB (occurrence: GB)
  Receive Date: 20180208
  Receipt Date: 20180208
  Transmission Date: 20180509
  Serious: Yes (Disabling)
  Sender: FDA-Public Use
  Company Number: GB-ASTRAZENECA-2018SE13762

PATIENT
  Age: 61 Year
  Sex: Female
  Weight: 66 kg

DRUGS (13)
  1. ISOSORBIDE MONONITRATE. [Concomitant]
     Active Substance: ISOSORBIDE MONONITRATE
     Dosage: MORNING.
     Dates: start: 20171127
  2. AMLODIPINE [Concomitant]
     Active Substance: AMLODIPINE BESYLATE
     Dates: start: 20171106, end: 20171204
  3. ATORVASTATIN [Concomitant]
     Active Substance: ATORVASTATIN
     Dates: start: 20170111
  4. NICORANDIL [Concomitant]
     Active Substance: NICORANDIL
     Dates: start: 20171207
  5. FLUCLOXACILLIN [Concomitant]
     Active Substance: FLUCLOXACILLIN
     Dates: start: 20171023, end: 20171030
  6. GLYCERYL TRINITRATE [Concomitant]
     Active Substance: NITROGLYCERIN
     Dosage: 240, SPRAY ONE OR TWO DOSES UNDER TONGUE AND THEN CL...
     Route: 060
     Dates: start: 20140211
  7. ATENOLOL. [Concomitant]
     Active Substance: ATENOLOL
     Dosage: MORNING.
     Dates: start: 20140811
  8. ACETYLSALICYLIC ACID [Concomitant]
     Active Substance: ASPIRIN
     Dates: start: 20140811
  9. ESTRADIOL. [Concomitant]
     Active Substance: ESTRADIOL
     Dosage: USE ONE EVERY NIGHT FOR 2 WEEKS, THEN USE TWO N...
     Dates: start: 20160728
  10. TOLNAFTATE. [Concomitant]
     Active Substance: TOLNAFTATE
     Dosage: APPLY.
     Dates: start: 20140211
  11. RAMIPRIL. [Concomitant]
     Active Substance: RAMIPRIL
     Dates: start: 20140811
  12. TICAGRELOR. [Suspect]
     Active Substance: TICAGRELOR
     Dosage: STARTED BY HOSPITAL
     Route: 048
     Dates: start: 20171215
  13. METFORMIN [Concomitant]
     Active Substance: METFORMIN HYDROCHLORIDE
     Dosage: WITH BREAKFAST.
     Dates: start: 20140211

REACTIONS (2)
  - Wheezing [Recovering/Resolving]
  - Dyspnoea [Unknown]

NARRATIVE: CASE EVENT DATE: 20180110
